FAERS Safety Report 17962705 (Version 2)
Quarter: 2021Q2

REPORT INFORMATION
  Report Type: Report from Study
  Country: ES (occurrence: ES)
  Receive Date: 20200630
  Receipt Date: 20210423
  Transmission Date: 20210717
  Serious: Yes (Hospitalization)
  Sender: FDA-Public Use
  Company Number: ES-PFIZER INC-2019-06630

PATIENT
  Age: 68 Year
  Sex: Female
  Weight: 68.9 kg

DRUGS (10)
  1. NIVOLUMAB [Suspect]
     Active Substance: NIVOLUMAB
     Indication: COLORECTAL CANCER METASTATIC
     Dosage: 480 MG, EVERY 4 WEEKS
     Route: 042
     Dates: start: 20180925, end: 20191112
  2. METILPREDNISOLONA [METHYLPREDNISOLONE] [Concomitant]
     Active Substance: METHYLPREDNISOLONE
     Dosage: UNK
  3. ORFIDAL [Concomitant]
     Active Substance: LORAZEPAM
     Dosage: UNK
  4. BINIMETINIB [Suspect]
     Active Substance: BINIMETINIB
     Indication: COLORECTAL CANCER METASTATIC
     Dosage: 45 MG, TWICE DAILY
     Route: 048
     Dates: start: 20180925, end: 20191030
  5. TRAMADOL/PARACETAMOL [Concomitant]
     Active Substance: ACETAMINOPHEN\TRAMADOL
     Indication: BACK PAIN
     Dosage: UNK
     Dates: start: 20191015
  6. ACETYLSALICYLIC ACID [Concomitant]
     Active Substance: ASPIRIN
     Dosage: UNK
  7. IPILIMUMAB [Suspect]
     Active Substance: IPILIMUMAB
     Indication: COLORECTAL CANCER METASTATIC
     Dosage: 68 MG, EVERY 8 WEEKS
     Route: 042
     Dates: start: 20180925, end: 20191112
  8. URBASON [METHYLPREDNISOLONE ACETATE] [Concomitant]
     Indication: ALANINE AMINOTRANSFERASE INCREASED
     Dosage: 80.00 MG, 1X/DAY
     Route: 042
     Dates: start: 20190903
  9. SEPTRIN [Concomitant]
     Active Substance: SULFAMETHOXAZOLE\TRIMETHOPRIM
     Indication: ANTIBIOTIC THERAPY
     Dosage: 1 TEASPOON, QD
     Route: 048
     Dates: start: 20190903
  10. URBASON [METHYLPREDNISOLONE ACETATE] [Concomitant]
     Indication: ASPARTATE AMINOTRANSFERASE INCREASED

REACTIONS (2)
  - Pancreatitis [Recovered/Resolved]
  - Transaminases increased [Recovered/Resolved]

NARRATIVE: CASE EVENT DATE: 20191029
